FAERS Safety Report 9222439 (Version 2)
Quarter: 2013Q3

REPORT INFORMATION
  Report Type: Spontaneous
  Country: US (occurrence: US)
  Receive Date: 20130410
  Receipt Date: 20130911
  Transmission Date: 20140515
  Serious: Yes (Hospitalization)
  Sender: FDA-Public Use
  Company Number: US-BAYER-2013-042691

PATIENT
  Age: 30 Year
  Sex: Female
  Weight: 90 kg

DRUGS (13)
  1. YAZ [Suspect]
  2. YASMIN [Suspect]
  3. OCELLA [Suspect]
  4. RESPIRATORY SYSTEM [Concomitant]
  5. TYLENOL [Concomitant]
     Dosage: UNK, AS NEEDED
  6. ALBUTEROL SULFATE [Concomitant]
     Dosage: UNK, AS NEEDED
  7. AUGMENTIN [Concomitant]
  8. SEROQUEL [Concomitant]
  9. CLARITIN [Concomitant]
  10. SUBOXONE [Concomitant]
  11. QUETIAPINE FUMARATE [Concomitant]
     Dosage: 100 MG, UNK
     Dates: start: 20120809, end: 20130118
  12. MOTRIN [Concomitant]
  13. IBUPROFEN [Concomitant]

REACTIONS (2)
  - Pulmonary embolism [None]
  - Deep vein thrombosis [None]
